FAERS Safety Report 4293100-0 (Version None)
Quarter: 2004Q1

REPORT INFORMATION
  Report Type: 
  Country: None (occurrence: None)
  Receive Date: 20040212
  Receipt Date: 20021217
  Transmission Date: 20041129
  Serious: No
  Sender: FDA-Public Use
  Company Number: US-GLAXOSMITHKLINE-A0389669A

PATIENT
  Age: 45 Year
  Sex: Female

DRUGS (2)
  1. PAXIL [Suspect]
     Indication: DEPRESSION
     Route: 048
     Dates: start: 19990101, end: 20030211
  2. WELLBUTRIN SR [Concomitant]

REACTIONS (3)
  - DIZZINESS [None]
  - SENSORY DISTURBANCE [None]
  - VOMITING [None]
